FAERS Safety Report 4635047-3 (Version None)
Quarter: 2005Q2

REPORT INFORMATION
  Report Type: 
  Country: None (occurrence: None)
  Receive Date: 20050414
  Receipt Date: 20050331
  Transmission Date: 20051028
  Serious: Yes (Other)
  Sender: FDA-Public Use
  Company Number: PHBS2005US04989

PATIENT
  Age: 53 Year
  Sex: Female

DRUGS (3)
  1. IMATINIB [Suspect]
     Indication: CHRONIC MYELOID LEUKAEMIA
     Dosage: 300 MG/DAY
     Dates: start: 20010901
  2. IMATINIB [Suspect]
     Dosage: 300 MG/DAY
     Dates: start: 20031101
  3. IMATINIB [Suspect]
     Dates: start: 20040101

REACTIONS (13)
  - ABDOMINAL PAIN [None]
  - ACUTE FEBRILE NEUTROPHILIC DERMATOSIS [None]
  - BODY TEMPERATURE INCREASED [None]
  - DIARRHOEA [None]
  - DYSPNOEA [None]
  - PAIN OF SKIN [None]
  - PERICARDIAL EFFUSION [None]
  - PLATELET COUNT INCREASED [None]
  - PLEURAL EFFUSION [None]
  - RASH ERYTHEMATOUS [None]
  - SKIN HYPERPIGMENTATION [None]
  - SKIN NODULE [None]
  - WHITE BLOOD CELL COUNT INCREASED [None]
